FAERS Safety Report 7259531-1 (Version None)
Quarter: 2011Q1

REPORT INFORMATION
  Report Type: 
  Country: None (occurrence: None)
  Receive Date: 20110129
  Receipt Date: 20100311
  Transmission Date: 20110831
  Serious: Yes (Other)
  Sender: FDA-Public Use
  Company Number: US-PFIZER INC-2010032707

PATIENT
  Sex: Female
  Weight: 54.422 kg

DRUGS (13)
  1. ALREX [Concomitant]
     Dosage: UNK, AS NEEDED
  2. REFRESH PLUS [Concomitant]
     Dosage: UNK
  3. LOPERAMIDE [Concomitant]
     Dosage: UNK
  4. LEVOTHYROXINE [Concomitant]
     Dosage: UNK
  5. RELPAX [Suspect]
     Indication: MIGRAINE
     Dosage: 40MG AS NEEDED
     Route: 048
     Dates: end: 20100101
  6. CYCLOSPORINE [Concomitant]
     Dosage: UNK
  7. NORTRIPTYLINE [Concomitant]
     Dosage: UNK
  8. CLOTRIMAZOLE [Concomitant]
     Dosage: UNK
  9. TEARS NATURALE [Concomitant]
     Dosage: UNK
  10. TOPAMAX [Concomitant]
     Dosage: UNK
  11. NAPROXEN [Concomitant]
     Dosage: UNK, AS NEEDED
  12. MUCINEX [Concomitant]
     Dosage: UNK
  13. BIOTIN [Concomitant]
     Dosage: UNK

REACTIONS (5)
  - WEIGHT FLUCTUATION [None]
  - DYSPNOEA [None]
  - HYPERTENSION [None]
  - CHEST PAIN [None]
  - DRUG INEFFECTIVE [None]
